FAERS Safety Report 6125885-2 (Version None)
Quarter: 2009Q1

REPORT INFORMATION
  Report Type: 
  Country: None (occurrence: None)
  Receive Date: 20090320
  Receipt Date: 20090309
  Transmission Date: 20090719
  Serious: Yes (Hospitalization, Other)
  Sender: FDA-Public Use
  Company Number: US-JNJFOC-20090302243

PATIENT
  Sex: Male
  Weight: 28 kg

DRUGS (6)
  1. REMICADE [Suspect]
     Route: 042
  2. REMICADE [Suspect]
     Indication: DRUG DEPENDENCE
     Route: 042
  3. URSODIOL [Concomitant]
  4. VITAMIN K [Concomitant]
  5. PREVACID [Concomitant]
  6. IRON [Concomitant]

REACTIONS (1)
  - POST PROCEDURAL HAEMORRHAGE [None]
